FAERS Safety Report 18182954 (Version 1)
Quarter: 2020Q3

REPORT INFORMATION
  Report Type: Spontaneous
  Country: JP (occurrence: JP)
  Receive Date: 20200821
  Receipt Date: 20200821
  Transmission Date: 20201103
  Serious: Yes (Other)
  Sender: FDA-Public Use
  Company Number: JP-BRISTOL-MYERS SQUIBB COMPANY-BMS-2020-043079

PATIENT
  Sex: Male

DRUGS (2)
  1. BARACLUDE [Suspect]
     Active Substance: ENTECAVIR
     Indication: ATRIOVENTRICULAR BLOCK COMPLETE
     Dosage: UNAVAILABLE
     Route: 048
  2. BARACLUDE [Suspect]
     Active Substance: ENTECAVIR
     Dosage: UNAVAILABLE

REACTIONS (3)
  - Intentional product use issue [Unknown]
  - Leukopenia [Unknown]
  - Neutrophil count decreased [Unknown]

NARRATIVE: CASE EVENT DATE: 202006
